FAERS Safety Report 7998774-6 (Version None)
Quarter: 2011Q4

REPORT INFORMATION
  Report Type: 
  Country: None (occurrence: None)
  Receive Date: 20111221
  Receipt Date: 20111027
  Transmission Date: 20120403
  Serious: Yes (Other)
  Sender: FDA-Public Use
  Company Number: US-PURDUE-USA-2011-0079823

PATIENT
  Sex: Male

DRUGS (3)
  1. OXYCONTIN [Suspect]
     Indication: MULTIPLE FRACTURES
  2. OXYCONTIN [Suspect]
     Indication: BACK PAIN
  3. OXYCONTIN [Suspect]
     Indication: INTERVERTEBRAL DISC PROTRUSION
     Dosage: UNK
     Dates: start: 20020101, end: 20070101

REACTIONS (3)
  - DEPRESSION [None]
  - SUICIDAL IDEATION [None]
  - DRUG REHABILITATION [None]
